FAERS Safety Report 20633227 (Version 1)
Quarter: 2022Q1

REPORT INFORMATION
  Report Type: Spontaneous
  Country: US (occurrence: None)
  Receive Date: 20220324
  Receipt Date: 20220324
  Transmission Date: 20220423
  Serious: Yes (Life-Threatening)
  Sender: FDA-Public Use
  Company Number: None

PATIENT
  Age: 71 Year
  Sex: Female
  Weight: 95.85 kg

DRUGS (6)
  1. CARDIOLITE [Suspect]
     Active Substance: TECHNETIUM TC-99M SESTAMIBI
     Indication: Scan myocardial perfusion
     Dosage: OTHER FREQUENCY : ONE TIME;?OTHER ROUTE : INTRAVENOUSLY;?
     Route: 050
     Dates: start: 20220213, end: 20220213
  2. LISINOPRIL [Concomitant]
     Active Substance: LISINOPRIL
  3. c [Concomitant]
  4. D [Concomitant]
  5. ZINC [Concomitant]
     Active Substance: ZINC
  6. VITAMINS [Concomitant]
     Active Substance: VITAMINS

REACTIONS (3)
  - Breast pain [None]
  - Angina pectoris [None]
  - Thyroid pain [None]

NARRATIVE: CASE EVENT DATE: 20220213
